FAERS Safety Report 14453865 (Version 2)
Quarter: 2018Q1

REPORT INFORMATION
  Report Type: Spontaneous
  Country: JP (occurrence: JP)
  Receive Date: 20180129
  Receipt Date: 20180212
  Transmission Date: 20180509
  Serious: Yes (Death, Other)
  Sender: FDA-Public Use
  Company Number: JP-IMPAX LABORATORIES, INC-2018-IPXL-00234

PATIENT
  Age: 50 Year
  Sex: Female

DRUGS (2)
  1. BEZAFIBRATE [Suspect]
     Active Substance: BEZAFIBRATE
     Indication: PRIMARY BILIARY CHOLANGITIS
     Dosage: UNK
     Route: 065
  2. URSODIOL. [Suspect]
     Active Substance: URSODIOL
     Indication: PRIMARY BILIARY CHOLANGITIS
     Dosage: UNK
     Route: 065

REACTIONS (7)
  - Sepsis [Fatal]
  - Respiratory tract infection [Unknown]
  - Pneumonia bacterial [Fatal]
  - Hypogammaglobulinaemia [Unknown]
  - Primary biliary cholangitis [Unknown]
  - Bronchitis [Unknown]
  - Pleural effusion [Unknown]
